FAERS Safety Report 7406944-0 (Version None)
Quarter: 2011Q2

REPORT INFORMATION
  Report Type: 
  Country: None (occurrence: None)
  Receive Date: 20110411
  Receipt Date: 20110405
  Transmission Date: 20111010
  Serious: Yes (Hospitalization, Other)
  Sender: FDA-Public Use
  Company Number: US-PFIZER INC-2010171571

PATIENT
  Sex: Female

DRUGS (10)
  1. CHANTIX [Suspect]
     Dosage: 1MG CONTINUING PACKS
     Dates: start: 20071102, end: 20080320
  2. HYDROCODONE [Concomitant]
     Indication: BACK PAIN
     Dosage: UNK
     Dates: start: 20040101, end: 20090101
  3. WELLBUTRIN [Concomitant]
     Indication: DEPRESSION
     Dosage: UNK
     Dates: start: 20030101
  4. ATIVAN [Concomitant]
     Indication: ANXIETY
     Dosage: UNK
     Dates: start: 20030101, end: 20100101
  5. MONTELUKAST SODIUM [Concomitant]
     Indication: ASTHMA
  6. CHANTIX [Suspect]
     Indication: SMOKING CESSATION THERAPY
     Dosage: STARTER PACK
     Dates: start: 20060914, end: 20060921
  7. CYMBALTA [Concomitant]
     Indication: DEPRESSION
     Dosage: UNK
     Dates: start: 20030101, end: 20100101
  8. ZYRTEC [Concomitant]
     Indication: MULTIPLE ALLERGIES
     Dosage: UNK
     Dates: start: 20060101, end: 20080101
  9. MONTELUKAST SODIUM [Concomitant]
     Indication: CHRONIC OBSTRUCTIVE PULMONARY DISEASE
     Dosage: UNK
     Dates: start: 20060101, end: 20090101
  10. MONTELUKAST SODIUM [Concomitant]
     Indication: BRONCHITIS

REACTIONS (6)
  - SUICIDE ATTEMPT [None]
  - SLEEP TERROR [None]
  - IRRITABILITY [None]
  - DEPRESSION [None]
  - INTENTIONAL OVERDOSE [None]
  - INSOMNIA [None]
